FAERS Safety Report 7710183-3 (Version None)
Quarter: 2011Q3

REPORT INFORMATION
  Report Type: 
  Country: None (occurrence: None)
  Receive Date: 20110819
  Receipt Date: 20110610
  Transmission Date: 20111222
  Serious: Yes (Other)
  Sender: FDA-Public Use
  Company Number: AUR-APU-2011-02707

PATIENT
  Age: 39 Year
  Sex: Male

DRUGS (4)
  1. CLOZAPINE [Concomitant]
  2. MIRTAZAPINE [Suspect]
     Indication: DEPRESSION
     Dosage: (45 MG,1 D),ORAL
     Route: 048
     Dates: start: 20100701
  3. LAMOTRIGINE [Concomitant]
  4. HYOSCINE [Concomitant]

REACTIONS (5)
  - DRUG DOSE OMISSION [None]
  - INSOMNIA [None]
  - PRODUCT PACKAGING QUANTITY ISSUE [None]
  - DRUG WITHDRAWAL SYNDROME [None]
  - NAUSEA [None]
